FAERS Safety Report 24257990 (Version 4)
Quarter: 2024Q4

REPORT INFORMATION
  Report Type: Report from Study
  Country: CL (occurrence: CL)
  Receive Date: 20240828
  Receipt Date: 20241015
  Transmission Date: 20250114
  Serious: Yes (Other)
  Sender: NOVARTIS
  Company Number: CL-002147023-NVSC2024CL085149

PATIENT
  Age: 50 Year
  Sex: Female

DRUGS (2)
  1. TASIGNA [Suspect]
     Active Substance: NILOTINIB
     Indication: Chronic myeloid leukaemia
     Dosage: 2 DOSAGE FORM, BID (200 MG, 2 IN THE MORNING AND 2 IN THE AFTERNOON (800 MG, QD (A DAY))
     Route: 048
     Dates: start: 202402
  2. TASIGNA [Suspect]
     Active Substance: NILOTINIB
     Dosage: 600 MG, QD (300 MG, Q12H)
     Route: 048

REACTIONS (21)
  - Hepatitis [Unknown]
  - Hepatotoxicity [Unknown]
  - Blood bilirubin increased [Unknown]
  - Liver disorder [Unknown]
  - Illness [Unknown]
  - Movement disorder [Unknown]
  - Blood triglycerides increased [Unknown]
  - Blood cholesterol increased [Unknown]
  - Cough [Recovered/Resolved]
  - Off label use [Unknown]
  - Blood alkaline phosphatase increased [Unknown]
  - Aspartate aminotransferase increased [Unknown]
  - Alanine aminotransferase increased [Unknown]
  - Bilirubin conjugated increased [Unknown]
  - Blood bilirubin unconjugated increased [Unknown]
  - Gamma-glutamyltransferase increased [Unknown]
  - Eosinophil count increased [Unknown]
  - Blood calcium increased [Unknown]
  - Blood phosphorus increased [Unknown]
  - Blood glucose increased [Unknown]
  - Lymphocyte count decreased [Unknown]

NARRATIVE: CASE EVENT DATE: 20240425
